FAERS Safety Report 18483869 (Version 2)
Quarter: 2021Q3

REPORT INFORMATION
  Report Type: Report from Study
  Country: None (occurrence: AR)
  Receive Date: 20201109
  Receipt Date: 20210825
  Transmission Date: 20211014
  Serious: Yes (Other)
  Sender: FDA-Public Use
  Company Number: AR-ABBVIE-20K-007-3567313-00

PATIENT
  Sex: Female

DRUGS (1)
  1. HUMIRA [Suspect]
     Active Substance: ADALIMUMAB
     Indication: ANKYLOSING SPONDYLITIS
     Route: 058
     Dates: start: 20130817

REACTIONS (3)
  - Hepatic function abnormal [Recovering/Resolving]
  - Liver disorder [Not Recovered/Not Resolved]
  - Hepatomegaly [Recovering/Resolving]

NARRATIVE: CASE EVENT DATE: 2020
